FAERS Safety Report 18078863 (Version 1)
Quarter: 2020Q3

REPORT INFORMATION
  Report Type: Spontaneous
  Country: US (occurrence: US)
  Receive Date: 20200727
  Receipt Date: 20200727
  Transmission Date: 20201103
  Serious: Yes (Other)
  Sender: FDA-Public Use
  Company Number: None

PATIENT
  Age: 62 Year
  Sex: Male

DRUGS (15)
  1. FLONASE [Concomitant]
     Active Substance: FLUTICASONE PROPIONATE
  2. COUMADIN [Concomitant]
     Active Substance: WARFARIN SODIUM
  3. ATORVASTATIN CALCIUM. [Concomitant]
     Active Substance: ATORVASTATIN CALCIUM
  4. FLUPHENAZINE DECANCATE [Concomitant]
  5. BISACODYL. [Concomitant]
     Active Substance: BISACODYL
  6. VENTOLIN HFA [Concomitant]
     Active Substance: ALBUTEROL SULFATE
  7. MULTI VITAMIN [Concomitant]
     Active Substance: VITAMINS
  8. HYDROCILOROTHIAZIDE [Concomitant]
  9. LIPITOR [Concomitant]
     Active Substance: ATORVASTATIN CALCIUM
  10. CABERGOLINE 0.5 TABLET [Suspect]
     Active Substance: CABERGOLINE
     Indication: NEOPLASM
     Route: 048
     Dates: start: 20190405
  11. NORVASC [Concomitant]
     Active Substance: AMLODIPINE BESYLATE
  12. LISINOPRIL. [Concomitant]
     Active Substance: LISINOPRIL
  13. PROZAC [Concomitant]
     Active Substance: FLUOXETINE HYDROCHLORIDE
  14. ASPIRIN. [Concomitant]
     Active Substance: ASPIRIN
  15. WARFARIN SODIUM. [Concomitant]
     Active Substance: WARFARIN SODIUM

REACTIONS (2)
  - Cerebrovascular accident [None]
  - Circulatory collapse [None]
